FAERS Safety Report 7502922-1 (Version None)
Quarter: 2011Q2

REPORT INFORMATION
  Report Type: 
  Country: None (occurrence: None)
  Receive Date: 20110518
  Receipt Date: 20110509
  Transmission Date: 20111010
  Serious: Yes (Disabling)
  Sender: FDA-Public Use
  Company Number: SP03473

PATIENT
  Age: 65 Year
  Sex: Male
  Weight: 163.2949 kg

DRUGS (4)
  1. LASIX [Concomitant]
  2. XIFAXAN [Suspect]
     Indication: HEPATIC ENCEPHALOPATHY
     Dosage: 550 MG (550 MG, 2 IN 1 D), ORAL
     Route: 048
     Dates: start: 20100301
  3. ASPIRIN [Concomitant]
  4. LEXAPRO [Concomitant]

REACTIONS (2)
  - TREMOR [None]
  - PARKINSON'S DISEASE [None]
